FAERS Safety Report 6854751-X (Version None)
Quarter: 2010Q3

REPORT INFORMATION
  Report Type: 
  Country: None (occurrence: None)
  Receive Date: 20100717
  Receipt Date: 20080111
  Transmission Date: 20110219
  Serious: No
  Sender: FDA-Public Use
  Company Number: US-PFIZER INC-2008004046

PATIENT
  Sex: Female
  Weight: 61.8 kg

DRUGS (5)
  1. CHANTIX [Suspect]
     Indication: SMOKING CESSATION THERAPY
     Route: 048
     Dates: start: 20071101, end: 20071101
  2. ANTIDEPRESSANTS [Suspect]
     Indication: DEPRESSION
     Route: 048
  3. PARNATE [Concomitant]
     Route: 048
  4. COMBIVENT [Concomitant]
     Route: 048
  5. TRILAFON [Concomitant]
     Route: 048

REACTIONS (2)
  - DEPRESSION [None]
  - DIZZINESS [None]
